FAERS Safety Report 9931469 (Version 2)
Quarter: 2014Q1

REPORT INFORMATION
  Report Type: Report from Study
  Country: US (occurrence: US)
  Receive Date: 20140228
  Receipt Date: 20140324
  Transmission Date: 20141002
  Serious: Yes (Other)
  Sender: FDA-Public Use
  Company Number: US-ROCHE-1356845

PATIENT
  Age: 10 Year
  Sex: Female
  Weight: 26 kg

DRUGS (3)
  1. NUTROPIN [Suspect]
     Indication: BODY HEIGHT BELOW NORMAL
     Route: 058
     Dates: start: 20120410
  2. NUTROPIN [Suspect]
     Indication: TURNER^S SYNDROME
  3. SYNTHROID [Concomitant]
     Indication: HYPOTHYROIDISM
     Route: 048
     Dates: start: 20120612

REACTIONS (1)
  - Diabetes mellitus [Unknown]
